FAERS Safety Report 6720105-X (Version None)
Quarter: 2010Q2

REPORT INFORMATION
  Report Type: 
  Country: None (occurrence: None)
  Receive Date: 20100511
  Receipt Date: 20100505
  Transmission Date: 20101027
  Serious: Yes (Hospitalization)
  Sender: FDA-Public Use
  Company Number: JP-EISAI INC.-E2020-06556-SPO-JP

PATIENT
  Sex: Female

DRUGS (2)
  1. ARICEPT [Suspect]
     Indication: DRUG USE FOR UNKNOWN INDICATION
     Route: 048
  2. ARICEPT [Suspect]
     Route: 048

REACTIONS (3)
  - DELIRIUM [None]
  - HALLUCINATION [None]
  - OESOPHAGEAL DISORDER [None]
